FAERS Safety Report 19988664 (Version 1)
Quarter: 2021Q4

REPORT INFORMATION
  Report Type: Report from Study
  Country: US (occurrence: US)
  Receive Date: 20211024
  Receipt Date: 20211024
  Transmission Date: 20220303
  Serious: Yes (Hospitalization, Other)
  Sender: FDA-Public Use
  Company Number: 2021A711940

PATIENT
  Age: 27272 Day
  Sex: Male

DRUGS (2)
  1. LYNPARZA [Suspect]
     Active Substance: OLAPARIB
     Indication: Prostate cancer
     Route: 048
     Dates: start: 20210710, end: 202108
  2. LYNPARZA [Suspect]
     Active Substance: OLAPARIB
     Indication: Prostate cancer
     Route: 048
     Dates: start: 202109, end: 202109

REACTIONS (14)
  - Dehydration [Unknown]
  - Pleural effusion [Unknown]
  - Anaemia [Unknown]
  - Feeling abnormal [Unknown]
  - Arthralgia [Unknown]
  - Dizziness [Unknown]
  - Nausea [Recovered/Resolved]
  - Secretion discharge [Unknown]
  - Insomnia [Unknown]
  - Discomfort [Unknown]
  - Decreased appetite [Not Recovered/Not Resolved]
  - Diarrhoea [Unknown]
  - Nervousness [Not Recovered/Not Resolved]
  - Product dose omission issue [Unknown]

NARRATIVE: CASE EVENT DATE: 20210801
